FAERS Safety Report 5951936-1 (Version None)
Quarter: 2008Q4

REPORT INFORMATION
  Report Type: 
  Country: None (occurrence: None)
  Receive Date: 20081113
  Receipt Date: 20071207
  Transmission Date: 20090506
  Serious: No
  Sender: FDA-Public Use
  Company Number: A0640050A

PATIENT
  Age: 94 Year
  Sex: Female

DRUGS (7)
  1. COREG [Suspect]
     Indication: DRUG USE FOR UNKNOWN INDICATION
     Dosage: 3.125MG TWICE PER DAY
     Route: 048
     Dates: start: 20070213
  2. COZAAR [Concomitant]
  3. ALLOPURINOL [Concomitant]
  4. LANOXIN [Concomitant]
  5. BUMEX [Concomitant]
  6. FORTICAL [Concomitant]
  7. COUMADIN [Concomitant]

REACTIONS (2)
  - BLOOD PRESSURE DECREASED [None]
  - HEART RATE DECREASED [None]
